FAERS Safety Report 14262908 (Version 1)
Quarter: 2017Q4

REPORT INFORMATION
  Report Type: Spontaneous
  Country: US (occurrence: US)
  Receive Date: 20171208
  Receipt Date: 20171208
  Transmission Date: 20180321
  Serious: No
  Sender: FDA-Public Use
  Company Number: US-GLAXOSMITHKLINE-US2017182484

PATIENT
  Age: 24 Year
  Sex: Female
  Weight: 54 kg

DRUGS (1)
  1. EQUATE NICOTINE [Suspect]
     Active Substance: NICOTINE
     Indication: SMOKING CESSATION THERAPY
     Dosage: 14 MG, PRN
     Route: 062
     Dates: start: 20171124, end: 20171125

REACTIONS (2)
  - Inappropriate schedule of drug administration [Unknown]
  - Vomiting [Unknown]

NARRATIVE: CASE EVENT DATE: 20171125
